FAERS Safety Report 6166021-6 (Version None)
Quarter: 2009Q2

REPORT INFORMATION
  Report Type: 
  Country: None (occurrence: None)
  Receive Date: 20090424
  Receipt Date: 20090414
  Transmission Date: 20091009
  Serious: Yes (Hospitalization)
  Sender: FDA-Public Use
  Company Number: GB-RANBAXY-2009RR-21250

PATIENT
  Age: 61 Year
  Sex: Female

DRUGS (6)
  1. SIMVASTATIN [Suspect]
     Indication: DRUG USE FOR UNKNOWN INDICATION
     Dosage: 40 MG, QD
     Route: 048
  2. CYCLOSPORINE [Concomitant]
     Indication: IMMUNOSUPPRESSION
  3. CYCLOSPORINE [Concomitant]
     Indication: RENAL TRANSPLANT
  4. AZATHIOPRINE SODIUM [Concomitant]
     Indication: IMMUNOSUPPRESSION
  5. PREDNISOLONE [Concomitant]
     Indication: IMMUNOSUPPRESSION
  6. WARFARIN SODIUM [Concomitant]
     Indication: ATRIAL FIBRILLATION

REACTIONS (9)
  - ASTHENIA [None]
  - BLOOD CREATINE PHOSPHOKINASE INCREASED [None]
  - DRUG INTERACTION [None]
  - IMMUNOSUPPRESSANT DRUG LEVEL INCREASED [None]
  - MYALGIA [None]
  - MYOPATHY [None]
  - RENAL FAILURE [None]
  - RHABDOMYOLYSIS [None]
  - UBIQUINONE DECREASED [None]
